FAERS Safety Report 7888762-2 (Version None)
Quarter: 2011Q4

REPORT INFORMATION
  Report Type: 
  Country: None (occurrence: None)
  Receive Date: 20111103
  Receipt Date: 20111025
  Transmission Date: 20120403
  Serious: Yes (Death, Hospitalization, Other)
  Sender: FDA-Public Use
  Company Number: NO-UCBSA-041096

PATIENT
  Age: 69 Year
  Sex: Female

DRUGS (6)
  1. METHOTREXATE [Suspect]
     Indication: RHEUMATOID ARTHRITIS
     Route: 058
     Dates: start: 20110606, end: 20110101
  2. PARALGIN FORTE [Concomitant]
     Dosage: 0-2
  3. METHOTREXATE [Suspect]
     Route: 048
  4. LOSARTAN POTASSIUM [Concomitant]
     Dosage: TOTAL DAILY DOSE: 50 MG
  5. VIVAL [Concomitant]
     Dosage: 0-5 MG
  6. CIMZIA [Suspect]
     Indication: RHEUMATOID ARTHRITIS
     Route: 058
     Dates: start: 20110627, end: 20110905

REACTIONS (7)
  - MYOCARDIAL INFARCTION [None]
  - HYPOGLYCAEMIA [None]
  - CARDIAC ARREST [None]
  - C-REACTIVE PROTEIN INCREASED [None]
  - SEPSIS [None]
  - CHOLECYSTITIS [None]
  - BLOOD GLUCOSE DECREASED [None]
